FAERS Safety Report 21810201 (Version 1)
Quarter: 2023Q1

REPORT INFORMATION
  Report Type: Spontaneous
  Country: US (occurrence: US)
  Receive Date: 20230103
  Receipt Date: 20230103
  Transmission Date: 20230418
  Serious: No
  Sender: FDA-Public Use
  Company Number: US-SA-SAC20221230000757

PATIENT
  Age: 31 Year
  Sex: Male
  Weight: 85 kg

DRUGS (2)
  1. DUPIXENT [Suspect]
     Active Substance: DUPILUMAB
     Indication: Dermatitis atopic
     Dosage: 300 MG, QOW
     Route: 058
     Dates: start: 202211
  2. DUPIXENT [Suspect]
     Active Substance: DUPILUMAB
     Indication: Illness

REACTIONS (4)
  - Dry skin [Unknown]
  - Skin weeping [Unknown]
  - Rash pustular [Unknown]
  - Pruritus [Recovering/Resolving]
